FAERS Safety Report 7371665-X (Version None)
Quarter: 2011Q1

REPORT INFORMATION
  Report Type: 
  Country: None (occurrence: None)
  Receive Date: 20110314
  Receipt Date: 20110225
  Transmission Date: 20110831
  Serious: No
  Sender: FDA-Public Use
  Company Number: 2011P1004621

PATIENT
  Age: 33 Year
  Sex: Female
  Weight: 55.7924 kg

DRUGS (2)
  1. PAXIL [Concomitant]
  2. HYDROCORTISONE [Suspect]
     Indication: PRURITUS
     Dosage: X1; TOP
     Route: 061
     Dates: start: 20110222, end: 20110222

REACTIONS (6)
  - APPLICATION SITE INFLAMMATION [None]
  - CHEMICAL INJURY [None]
  - SCAB [None]
  - SKIN DISORDER [None]
  - APPLICATION SITE SWELLING [None]
  - INSOMNIA [None]
